FAERS Safety Report 5573515-0 (Version None)
Quarter: 2007Q4

REPORT INFORMATION
  Report Type: 
  Country: None (occurrence: None)
  Receive Date: 20071226
  Receipt Date: 20071218
  Transmission Date: 20080405
  Serious: Yes (Hospitalization)
  Sender: FDA-Public Use
  Company Number: ESWYE850921JUL05

PATIENT
  Sex: Male

DRUGS (5)
  1. RAPAMUNE [Suspect]
     Indication: PROPHYLAXIS AGAINST TRANSPLANT REJECTION
     Route: 048
     Dates: start: 20050410, end: 20050715
  2. RAPAMUNE [Suspect]
     Route: 048
     Dates: start: 20050716
  3. PREDNISONE [Concomitant]
  4. DACLIZUMAB [Concomitant]
  5. MYCOPHENOLATE MOFETIL [Concomitant]
     Dates: end: 20050714

REACTIONS (2)
  - DEHYDRATION [None]
  - NEPHROPATHY TOXIC [None]
